FAERS Safety Report 6333116-3 (Version None)
Quarter: 2009Q3

REPORT INFORMATION
  Report Type: 
  Country: None (occurrence: None)
  Receive Date: 20090828
  Receipt Date: 20090819
  Transmission Date: 20100115
  Serious: Yes (Death, Other)
  Sender: FDA-Public Use
  Company Number: GB-AVENTIS-200917403GDDC

PATIENT
  Sex: Male

DRUGS (1)
  1. GLIBENCLAMIDE [Suspect]
     Indication: ERECTILE DYSFUNCTION
     Route: 048

REACTIONS (14)
  - BRAIN OEDEMA [None]
  - BRAIN STEM SYNDROME [None]
  - COGNITIVE DISORDER [None]
  - COMA [None]
  - CONVULSION [None]
  - DEATH [None]
  - DRUG ADMINISTRATION ERROR [None]
  - DYSARTHRIA [None]
  - FACIAL BONES FRACTURE [None]
  - HEAD INJURY [None]
  - HEMIPARESIS [None]
  - HYPOGLYCAEMIA [None]
  - PNEUMONIA [None]
  - STATUS EPILEPTICUS [None]
